FAERS Safety Report 6920893-3 (Version None)
Quarter: 2010Q3

REPORT INFORMATION
  Report Type: 
  Country: None (occurrence: None)
  Receive Date: 20100812
  Receipt Date: 20100803
  Transmission Date: 20110219
  Serious: Yes (Hospitalization, Other)
  Sender: FDA-Public Use
  Company Number: US-ASTRAZENECA-2010SE36437

PATIENT
  Age: 36 Year
  Sex: Female

DRUGS (8)
  1. SEROQUEL [Suspect]
     Indication: BIPOLAR DISORDER
     Route: 048
     Dates: end: 20100101
  2. SEROQUEL [Suspect]
     Dosage: 50 MG DURING THE DAY AND 200 MG HS
     Route: 048
     Dates: start: 20100101, end: 20100630
  3. SEROQUEL [Suspect]
     Route: 048
     Dates: start: 20100705
  4. SEROQUEL [Suspect]
     Route: 048
     Dates: start: 20100705
  5. AMOXICILLIN [Concomitant]
     Indication: DENTAL DISORDER PROPHYLAXIS
  6. COUMADIN [Concomitant]
  7. PERCOCET [Concomitant]
     Indication: BACK PAIN
  8. RIMICAID [Concomitant]
     Indication: CROHN'S DISEASE
     Dosage: MONTH

REACTIONS (21)
  - ABNORMAL DREAMS [None]
  - AGITATION [None]
  - AIR EMBOLISM [None]
  - APPLICATION SITE INFECTION [None]
  - CENTRAL VENOUS CATHETER REMOVAL [None]
  - CHEST DISCOMFORT [None]
  - DRUG ADMINISTRATION ERROR [None]
  - DRUG DOSE OMISSION [None]
  - FAECAL INCONTINENCE [None]
  - FALL [None]
  - FOOD CRAVING [None]
  - HYPERSOMNIA [None]
  - NIGHT SWEATS [None]
  - PULMONARY EMBOLISM [None]
  - SEDATION [None]
  - SEPSIS [None]
  - SPINAL FRACTURE [None]
  - TOOTH EXTRACTION [None]
  - URINARY INCONTINENCE [None]
  - WEIGHT INCREASED [None]
  - WRONG TECHNIQUE IN DRUG USAGE PROCESS [None]
